FAERS Safety Report 14983781 (Version 2)
Quarter: 2018Q2

REPORT INFORMATION
  Report Type: Spontaneous
  Country: US (occurrence: US)
  Receive Date: 20180607
  Receipt Date: 20180611
  Transmission Date: 20180711
  Serious: Yes (Death)
  Sender: FDA-Public Use
  Company Number: US-PFIZER INC-2018233100

PATIENT
  Age: 86 Year
  Sex: Male

DRUGS (3)
  1. FENTANYL. [Concomitant]
     Active Substance: FENTANYL
     Indication: OSTEOPOROSIS
     Dosage: UNK
     Route: 062
  2. LYRICA [Suspect]
     Active Substance: PREGABALIN
     Dosage: UNK
  3. PERCOCET [Concomitant]
     Active Substance: ACETAMINOPHEN\OXYCODONE HYDROCHLORIDE
     Indication: OSTEOPOROSIS
     Dosage: UNK

REACTIONS (1)
  - Death [Fatal]
